FAERS Safety Report 23259684 (Version 2)
Quarter: 2023Q4

REPORT INFORMATION
  Report Type: Spontaneous
  Country: US (occurrence: US)
  Receive Date: 20231204
  Receipt Date: 20231222
  Transmission Date: 20240109
  Serious: Yes (Other)
  Sender: FDA-Public Use
  Company Number: US-PFIZER INC-PV202300183532

PATIENT
  Age: 84 Year
  Sex: Female

DRUGS (2)
  1. IBRANCE [Suspect]
     Active Substance: PALBOCICLIB
     Indication: Metastases to bone
     Dosage: 1 TABLET ORALLY DAILY, ON DAYS 1 THROUGH 14, OFF DAYS 15-28, EVERY 28-DAYS
     Route: 048
  2. IBRANCE [Suspect]
     Active Substance: PALBOCICLIB
     Dosage: 1 TABLET ORALLY DAILY ON DAYS 1-14 OFF DAYS 15-25 EVERY 28 DAYS

REACTIONS (3)
  - Fall [Unknown]
  - Off label use [Unknown]
  - Product use issue [Unknown]
